FAERS Safety Report 6421440-5 (Version None)
Quarter: 2009Q4

REPORT INFORMATION
  Report Type: 
  Country: None (occurrence: None)
  Receive Date: 20091029
  Receipt Date: 20091029
  Transmission Date: 20100525
  Serious: No
  Sender: FDA-Public Use
  Company Number: None

PATIENT
  Age: 57 Year
  Sex: Female
  Weight: 52.1637 kg

DRUGS (4)
  1. LEXAPRO [Suspect]
     Indication: ANXIETY
     Dosage: 10 MG 1 A DAY
     Dates: start: 20090723, end: 20090731
  2. LEXAPRO [Suspect]
     Indication: INSOMNIA
     Dosage: 10 MG 1 A DAY
     Dates: start: 20090723, end: 20090731
  3. LEXAPRO [Suspect]
     Indication: ANXIETY
     Dosage: 10 MG 1 A DAY
     Dates: start: 20090818, end: 20090824
  4. LEXAPRO [Suspect]
     Indication: INSOMNIA
     Dosage: 10 MG 1 A DAY
     Dates: start: 20090818, end: 20090824

REACTIONS (8)
  - CONDITION AGGRAVATED [None]
  - DRY MOUTH [None]
  - FATIGUE [None]
  - HEART RATE DECREASED [None]
  - LOSS OF LIBIDO [None]
  - PALPITATIONS [None]
  - SEXUAL DYSFUNCTION [None]
  - TINNITUS [None]
